FAERS Safety Report 8613905-2 (Version None)
Quarter: 2012Q3

REPORT INFORMATION
  Report Type: 
  Country: None (occurrence: None)
  Receive Date: 20120823
  Receipt Date: 20120810
  Transmission Date: 20120928
  Serious: Yes (Hospitalization)
  Sender: FDA-Public Use
  Company Number: US-009507513-1203USA02844

PATIENT

DRUGS (5)
  1. FOSAMAX [Suspect]
     Dosage: 70 MG, QW
     Route: 048
     Dates: start: 20030127, end: 20080729
  2. FOSAMAX [Suspect]
     Indication: OSTEOPOROSIS
     Dosage: 10 MG, UNK
     Route: 048
     Dates: start: 20000817, end: 20030127
  3. ALENDRONATE SODIUM [Suspect]
     Indication: OSTEOPOROSIS
     Dosage: 70 MG, QW
     Route: 048
     Dates: start: 20080421, end: 20090721
  4. VITAMINS (UNSPECIFIED) [Concomitant]
     Dosage: UNK, QD
     Dates: start: 19900101
  5. FOSAMAX PLUS D [Suspect]
     Indication: OSTEOPOROSIS
     Dosage: 70 MG, QW

REACTIONS (15)
  - DRUG INEFFECTIVE [None]
  - EYE INFECTION [None]
  - FALL [None]
  - TOOTH INFECTION [None]
  - VITAMIN D DEFICIENCY [None]
  - LOW TURNOVER OSTEOPATHY [None]
  - UPPER-AIRWAY COUGH SYNDROME [None]
  - FEMUR FRACTURE [None]
  - FOOT FRACTURE [None]
  - INTERVERTEBRAL DISC DEGENERATION [None]
  - INTERVERTEBRAL DISC PROTRUSION [None]
  - SPINAL DEFORMITY [None]
  - OSTEOARTHRITIS [None]
  - EAR INFECTION [None]
  - SCOLIOSIS [None]
